FAERS Safety Report 5130288-3 (Version None)
Quarter: 2006Q4

REPORT INFORMATION
  Report Type: 
  Country: None (occurrence: None)
  Receive Date: 20061013
  Receipt Date: 20060926
  Transmission Date: 20070319
  Serious: Yes (Other)
  Sender: FDA-Public Use
  Company Number: US200609007353

PATIENT
  Age: 51 Year
  Sex: Female

DRUGS (2)
  1. EVISTA [Suspect]
     Indication: DRUG USE FOR UNKNOWN INDICATION
     Dosage: ORAL
     Route: 048
  2. SYNTHROID [Concomitant]

REACTIONS (1)
  - OESTRADIOL INCREASED [None]
